FAERS Safety Report 13803227 (Version 2)
Quarter: 2018Q2

REPORT INFORMATION
  Report Type: Report from Study
  Country: BR (occurrence: BR)
  Receive Date: 20170728
  Receipt Date: 20180422
  Transmission Date: 20180711
  Serious: Yes (Hospitalization)
  Sender: FDA-Public Use
  Company Number: BR-UCBSA-2017029118

PATIENT
  Age: 7 Year
  Sex: Male

DRUGS (5)
  1. GARDENAL [Concomitant]
     Active Substance: PHENOBARBITAL
     Indication: PRODUCT USED FOR UNKNOWN INDICATION
  2. LEVETIRACETAM. [Suspect]
     Active Substance: LEVETIRACETAM
     Dosage: PATIENT IS USING HALF A TABLET OF LEVETIRACETAM 750 MG EVERY 12 HOURS, 2X/DAY (BID)
     Route: 048
     Dates: start: 201710
  3. DEPAKENE [Concomitant]
     Active Substance: VALPROIC ACID
     Indication: PRODUCT USED FOR UNKNOWN INDICATION
  4. LEVETIRACETAM. [Suspect]
     Active Substance: LEVETIRACETAM
     Indication: EPILEPSY
     Dosage: 1 TABLET OF 250 MG IN THE MORNING AND 2 TABLETS OF 250 MG IN THE EVENING, 2X/DAY (BID)
     Route: 048
     Dates: start: 20170715
  5. RIVOTRIL [Concomitant]
     Active Substance: CLONAZEPAM
     Indication: PRODUCT USED FOR UNKNOWN INDICATION

REACTIONS (7)
  - Somnolence [Recovered/Resolved]
  - Mood altered [Recovered/Resolved]
  - Confusional state [Recovered/Resolved]
  - Wrong technique in product usage process [Unknown]
  - Memory impairment [Unknown]
  - Gastrostomy [Not Recovered/Not Resolved]
  - Off label use [Unknown]

NARRATIVE: CASE EVENT DATE: 201704
